FAERS Safety Report 23242423 (Version 1)
Quarter: 2023Q4

REPORT INFORMATION
  Report Type: Spontaneous
  Country: US (occurrence: US)
  Receive Date: 20231129
  Receipt Date: 20231129
  Transmission Date: 20240109
  Serious: Yes (Other)
  Sender: FDA-Public Use
  Company Number: US-MYLANLABS-2023M1125793

PATIENT
  Age: 37 Year
  Sex: Male

DRUGS (4)
  1. SIMVASTATIN [Suspect]
     Active Substance: SIMVASTATIN
     Indication: Arteriosclerosis coronary artery
     Dosage: 20 MILLIGRAM, QD
     Route: 065
  2. SIMVASTATIN [Suspect]
     Active Substance: SIMVASTATIN
     Indication: Low density lipoprotein increased
     Dosage: RECEIVED MAINTENANCE DOSAGE FOR SEVERAL YEARS
     Route: 065
  3. SIMVASTATIN [Suspect]
     Active Substance: SIMVASTATIN
     Indication: Atherosclerosis prophylaxis
  4. NIACIN [Suspect]
     Active Substance: NIACIN
     Indication: High density lipoprotein decreased
     Dosage: 1 GRAM, QD (CONTROLLED RELEASE)
     Route: 065

REACTIONS (1)
  - Drug ineffective [Unknown]
